FAERS Safety Report 22903971 (Version 3)
Quarter: 2024Q1

REPORT INFORMATION
  Report Type: Spontaneous
  Country: US (occurrence: US)
  Receive Date: 20230905
  Receipt Date: 20240215
  Transmission Date: 20240409
  Serious: No
  Sender: FDA-Public Use
  Company Number: US-SA-SAC20230831000388

PATIENT
  Age: 78 Year
  Sex: Female

DRUGS (2)
  1. DUPIXENT [Suspect]
     Active Substance: DUPILUMAB
     Indication: Eczema
     Dosage: 600 MG, 1X
     Route: 058
     Dates: start: 20230802, end: 20230802
  2. DUPIXENT [Suspect]
     Active Substance: DUPILUMAB
     Dosage: 300 MG, QOW
     Route: 058
     Dates: start: 20230817

REACTIONS (12)
  - Vitreous floaters [Recovered/Resolved]
  - Visual impairment [Recovered/Resolved]
  - Influenza [Recovering/Resolving]
  - Visual impairment [Not Recovered/Not Resolved]
  - Nausea [Recovering/Resolving]
  - Diarrhoea [Recovering/Resolving]
  - Vomiting [Recovering/Resolving]
  - Headache [Unknown]
  - Vertigo [Recovering/Resolving]
  - Dizziness [Not Recovered/Not Resolved]
  - Back pain [Unknown]
  - Eczema [Unknown]

NARRATIVE: CASE EVENT DATE: 20230101
